FAERS Safety Report 6505357-3 (Version None)
Quarter: 2009Q4

REPORT INFORMATION
  Report Type: 
  Country: None (occurrence: None)
  Receive Date: 20091216
  Receipt Date: 20091209
  Transmission Date: 20100525
  Serious: Yes (Life-Threatening, Hospitalization)
  Sender: FDA-Public Use
  Company Number: ADR53242009 (MHRA ADR NO.:ADR 20000121-003)

PATIENT
  Age: 24 Year
  Sex: Female

DRUGS (7)
  1. SERTRALINE HCL [Suspect]
  2. AMOXICILLIN [Concomitant]
  3. ANTIBIOTICS [Concomitant]
  4. CLOZARIL [Concomitant]
  5. HYOSCINE [Concomitant]
  6. MOCLOBEMIDE [Concomitant]
  7. SULPIRIDE [Concomitant]

REACTIONS (5)
  - LIVER FUNCTION TEST ABNORMAL [None]
  - LOSS OF CONSCIOUSNESS [None]
  - OVERDOSE [None]
  - VOMITING [None]
  - WEIGHT DECREASED [None]
